FAERS Safety Report 8123633-8 (Version None)
Quarter: 2012Q1

REPORT INFORMATION
  Report Type: 
  Country: None (occurrence: None)
  Receive Date: 20120208
  Receipt Date: 20120202
  Transmission Date: 20120608
  Serious: Yes (Death)
  Sender: FDA-Public Use
  Company Number: PHHY2012AU005183

PATIENT
  Sex: Male

DRUGS (6)
  1. ZOLEDRONOC ACID [Suspect]
     Dosage: 5 MG, UNK
     Route: 042
     Dates: start: 20101215
  2. ASPIRIN [Concomitant]
     Dosage: 150 MG, DAILY
     Route: 048
     Dates: start: 19970101
  3. ZOLEDRONOC ACID [Suspect]
     Dosage: 5 MG, UNK
     Route: 042
  4. BACLOFEN [Concomitant]
     Dosage: 25 MG, BID
     Route: 048
     Dates: start: 19900101
  5. NITRAZEPAM [Concomitant]
     Dosage: 5 MG, AT NIGHT
     Route: 048
     Dates: start: 19960101, end: 20110801
  6. OMEPRAZOLE [Concomitant]
     Dosage: 20 MG, DAILY
     Route: 048
     Dates: start: 20100622

REACTIONS (2)
  - MULTIPLE SCLEROSIS [None]
  - PNEUMONIA [None]
